FAERS Safety Report 13116678 (Version 1)
Quarter: 2017Q1

REPORT INFORMATION
  Report Type: Spontaneous
  Country: US (occurrence: US)
  Receive Date: 20170116
  Receipt Date: 20170116
  Transmission Date: 20170428
  Serious: No
  Sender: FDA-Public Use
  Company Number: US-DRREDDYS-USA/USA/16/0081002

PATIENT

DRUGS (2)
  1. ZAFIRLUKAST TABLETS 10 MG AND 20 MG [Suspect]
     Active Substance: ZAFIRLUKAST
     Indication: ASTHMA
     Dosage: 1 HOUR BEFORE MEAL
     Route: 048
     Dates: start: 20160129
  2. ZAFIRLUKAST TABLETS 10 MG  AND  20 MG [Suspect]
     Active Substance: ZAFIRLUKAST
     Indication: RESPIRATORY DISORDER

REACTIONS (2)
  - No adverse event [Unknown]
  - Drug dispensing error [Unknown]
